FAERS Safety Report 25583962 (Version 3)
Quarter: 2025Q3

REPORT INFORMATION
  Report Type: Report from Study
  Country: US (occurrence: US)
  Receive Date: 20250721
  Receipt Date: 20250806
  Transmission Date: 20251021
  Serious: Yes (Other)
  Sender: SUNOVION
  Company Number: US-SMPA-2025SPA009059

PATIENT
  Age: 90 Year
  Sex: Male

DRUGS (4)
  1. ORGOVYX [Suspect]
     Active Substance: RELUGOLIX
     Indication: Prostate cancer
     Route: 048
  2. ORGOVYX [Suspect]
     Active Substance: RELUGOLIX
     Route: 048
  3. ABIRATERONE [Concomitant]
     Active Substance: ABIRATERONE
  4. LYNPARZA [Concomitant]
     Active Substance: OLAPARIB

REACTIONS (4)
  - Thyroid cancer [Unknown]
  - Bone cancer [Unknown]
  - Prostatic specific antigen increased [Not Recovered/Not Resolved]
  - Therapeutic product effect decreased [Unknown]
